FAERS Safety Report 4369621-9 (Version None)
Quarter: 2004Q2

REPORT INFORMATION
  Report Type: 
  Country: None (occurrence: None)
  Receive Date: 20040527
  Receipt Date: 20040512
  Transmission Date: 20050107
  Serious: Yes (Other)
  Sender: FDA-Public Use
  Company Number: USA040155894

PATIENT
  Age: 10 Year
  Sex: Male
  Weight: 33 kg

DRUGS (4)
  1. ZYPREXA [Suspect]
     Indication: OFF LABEL USE
  2. STRATTERA [Suspect]
     Indication: ATTENTION DEFICIT/HYPERACTIVITY DISORDER
     Dosage: 60 MG DAY
     Dates: start: 20030801
  3. DEPAKOTE [Concomitant]
  4. TEGRETOL [Concomitant]

REACTIONS (13)
  - AGGRESSION [None]
  - ANOREXIA [None]
  - ANTISOCIAL BEHAVIOUR [None]
  - BLOOD PRESSURE INCREASED [None]
  - CAPILLARY DISORDER [None]
  - CYANOSIS [None]
  - DIZZINESS [None]
  - ERYTHEMA [None]
  - FEELING COLD [None]
  - HOMICIDAL IDEATION [None]
  - HYPOVENTILATION [None]
  - PULSE ABSENT [None]
  - TACHYCARDIA [None]
